FAERS Safety Report 8835918 (Version 2)
Quarter: 2012Q4

REPORT INFORMATION
  Report Type: 
  Country: BR (occurrence: BR)
  Receive Date: 20121011
  Receipt Date: 20121102
  Transmission Date: 20130627
  Serious: Yes (Hospitalization, Other)
  Sender: FDA-Public Use
  Company Number: BR-PFIZER INC-2012250473

PATIENT
  Age: 81 Year
  Sex: Female
  Weight: 58 kg

DRUGS (5)
  1. FRONTAL [Suspect]
     Dosage: 0.5 mg (one tablet), 1x/day
     Route: 048
  2. ADALAT OROS [Concomitant]
     Dosage: one tablet, once daily
     Dates: start: 2007
  3. ARADOIS H [Concomitant]
     Dosage: one tablet, once daily
     Dates: start: 2007
  4. SOMALGIN [Concomitant]
     Dosage: one tablet, once daily
     Dates: start: 2007
  5. PANTOPRAZOLE [Concomitant]
     Indication: PROPHYLAXIS
     Dosage: one tablet, once daily
     Dates: start: 2007

REACTIONS (6)
  - Infarction [Unknown]
  - Breast operation [Unknown]
  - Vascular graft occlusion [Unknown]
  - Cardiac disorder [Unknown]
  - Depression [Unknown]
  - Blood cholesterol increased [Unknown]
